FAERS Safety Report 4870486-7 (Version None)
Quarter: 2006Q1

REPORT INFORMATION
  Report Type: 
  Country: None (occurrence: None)
  Receive Date: 20060103
  Receipt Date: 20051223
  Transmission Date: 20060701
  Serious: Yes (Death, Hospitalization)
  Sender: FDA-Public Use
  Company Number: DE-JNJFOC-20050900700

PATIENT
  Sex: Female
  Weight: 80 kg

DRUGS (5)
  1. REMICADE [Suspect]
     Route: 042
  2. REMICADE [Suspect]
     Indication: POLYARTHRITIS
     Route: 042
  3. MARCUMAR [Concomitant]
     Indication: ATRIAL FIBRILLATION
     Route: 065
  4. CORTISONE ACETATE TAB [Concomitant]
     Route: 065
  5. CORTISONE ACETATE TAB [Concomitant]
     Indication: RHEUMATOID ARTHRITIS
     Route: 065

REACTIONS (2)
  - PNEUMOCYSTIS JIROVECI INFECTION [None]
  - SEPTIC SHOCK [None]
